FAERS Safety Report 22321892 (Version 1)
Quarter: 2023Q2

REPORT INFORMATION
  Report Type: Spontaneous
  Country: US (occurrence: US)
  Receive Date: 20230516
  Receipt Date: 20230516
  Transmission Date: 20230721
  Serious: Yes (Hospitalization, Other)
  Sender: FDA-Public Use
  Company Number: US-BIOVITRUM-2023-US-010798

PATIENT
  Age: 1 Year
  Sex: Female

DRUGS (2)
  1. SYNAGIS [Suspect]
     Active Substance: PALIVIZUMAB
     Indication: Antiviral prophylaxis
     Dosage: ONE TIME PER MONTH
     Route: 030
     Dates: start: 202211
  2. SYNAGIS [Suspect]
     Active Substance: PALIVIZUMAB
     Indication: Premature baby
     Dosage: 50MG/0.5ML?ONE TIME PER MONTH
     Route: 030
     Dates: start: 202212

REACTIONS (2)
  - Bronchiolitis [Unknown]
  - Inappropriate schedule of product administration [Unknown]
